FAERS Safety Report 18991758 (Version 1)
Quarter: 2021Q1

REPORT INFORMATION
  Report Type: Other
  Country: US (occurrence: US)
  Receive Date: 20210310
  Receipt Date: 20210310
  Transmission Date: 20210420
  Serious: Yes (Death)
  Sender: FDA-Public Use
  Company Number: US-ROCHE-2157774

PATIENT
  Sex: Female

DRUGS (20)
  1. IBANDRONATE SODIUM. [Concomitant]
     Active Substance: IBANDRONATE SODIUM
  2. QUINIDINE SULFATE. [Concomitant]
     Active Substance: QUINIDINE SULFATE
  3. HYDROCORTISONE. [Concomitant]
     Active Substance: HYDROCORTISONE
  4. SYNTHROID [Concomitant]
     Active Substance: LEVOTHYROXINE SODIUM
  5. ZOLPIDEM TARTRATE. [Concomitant]
     Active Substance: ZOLPIDEM TARTRATE
  6. HYDROCODONE/ACETAMINOPHEN [Concomitant]
     Active Substance: ACETAMINOPHEN\HYDROCODONE
  7. SPIRONOLACTONE. [Concomitant]
     Active Substance: SPIRONOLACTONE
  8. NEXIUM [Concomitant]
     Active Substance: ESOMEPRAZOLE MAGNESIUM
  9. BACLOFEN. [Concomitant]
     Active Substance: BACLOFEN
  10. CLINDAMYCIN PHOSPHATE. [Concomitant]
     Active Substance: CLINDAMYCIN PHOSPHATE
  11. HYDROXYCHLOROQUINE [Concomitant]
     Active Substance: HYDROXYCHLOROQUINE
  12. LEVOTHYROXINE SODIUM. [Concomitant]
     Active Substance: LEVOTHYROXINE SODIUM
  13. CLINDAMYCIN. [Concomitant]
     Active Substance: CLINDAMYCIN
  14. DULOXETINE. [Concomitant]
     Active Substance: DULOXETINE
  15. TIZANIDINE HCL [Concomitant]
     Active Substance: TIZANIDINE HYDROCHLORIDE
  16. QUINIDINE [Concomitant]
     Active Substance: QUINIDINE
     Route: 065
  17. CELLCEPT [Suspect]
     Active Substance: MYCOPHENOLATE MOFETIL\MYCOPHENOLATE MOFETIL HYDROCHLORIDE
     Indication: PRODUCT USED FOR UNKNOWN INDICATION
     Route: 065
  18. KEPPRA [Concomitant]
     Active Substance: LEVETIRACETAM
  19. RITUXAN [Suspect]
     Active Substance: RITUXIMAB
     Indication: SYSTEMIC LUPUS ERYTHEMATOSUS
     Route: 042
     Dates: end: 20180813
  20. ACZONE [Concomitant]
     Active Substance: DAPSONE

REACTIONS (2)
  - Death [Fatal]
  - Off label use [Unknown]
